FAERS Safety Report 6488409-6 (Version None)
Quarter: 2009Q4

REPORT INFORMATION
  Report Type: 
  Country: None (occurrence: None)
  Receive Date: 20091210
  Receipt Date: 20090904
  Transmission Date: 20100525
  Serious: No
  Sender: FDA-Public Use
  Company Number: US-AMGEN-KDL363133

PATIENT
  Sex: Female

DRUGS (2)
  1. ENBREL [Suspect]
     Indication: RHEUMATOID ARTHRITIS
     Route: 058
     Dates: start: 19980301
  2. EUFLEXXA [Concomitant]

REACTIONS (8)
  - ABSCESS [None]
  - ARTHRALGIA [None]
  - ARTHRITIS [None]
  - ARTHROPATHY [None]
  - JOINT SWELLING [None]
  - RHEUMATOID ARTHRITIS [None]
  - SENSATION OF PRESSURE [None]
  - WALKING AID USER [None]
